FAERS Safety Report 4711814-2 (Version None)
Quarter: 2005Q3

REPORT INFORMATION
  Report Type: 
  Country: None (occurrence: None)
  Receive Date: 20050712
  Receipt Date: 20050704
  Transmission Date: 20060218
  Serious: Yes (Life-Threatening)
  Sender: FDA-Public Use
  Company Number: 2005AP03689

PATIENT
  Age: 89 Year
  Sex: Male

DRUGS (6)
  1. DIPRIVAN [Suspect]
     Indication: GENERAL ANAESTHESIA
     Route: 041
     Dates: start: 20040628, end: 20050628
  2. DIPRIVAN [Suspect]
     Route: 041
     Dates: start: 20040628, end: 20040628
  3. DIPRIVAN [Suspect]
     Route: 041
     Dates: start: 20040628, end: 20040628
  4. DIPRIVAN [Suspect]
     Route: 041
     Dates: start: 20040628, end: 20040628
  5. DIPRIVAN [Suspect]
     Route: 041
     Dates: start: 20040628, end: 20040628
  6. DIPRIVAN [Suspect]
     Route: 041
     Dates: start: 20040628, end: 20040628

REACTIONS (2)
  - APALLIC SYNDROME [None]
  - CARDIO-RESPIRATORY ARREST [None]
